FAERS Safety Report 18226450 (Version 1)
Quarter: 2020Q3

REPORT INFORMATION
  Report Type: Spontaneous
  Country: JP (occurrence: JP)
  Receive Date: 20200903
  Receipt Date: 20200903
  Transmission Date: 20201103
  Serious: Yes (Death, Hospitalization, Other)
  Sender: FDA-Public Use
  Company Number: JP-SA-2019SA308277

PATIENT

DRUGS (7)
  1. JEVTANA [Suspect]
     Active Substance: CABAZITAXEL
     Dosage: 40 MG (22.5 MG/M2) Q4W IN CYCLES 28?36
     Route: 041
  2. PREDONINE [Concomitant]
     Active Substance: PREDNISOLONE
     Indication: PRODUCT USED FOR UNKNOWN INDICATION
     Dosage: 10 MG QD
     Route: 065
  3. JEVTANA [Suspect]
     Active Substance: CABAZITAXEL
     Indication: HORMONE-REFRACTORY PROSTATE CANCER
     Dosage: 45 MG (25 MG/M2), 1X
     Route: 041
     Dates: start: 201507, end: 201507
  4. JEVTANA [Suspect]
     Active Substance: CABAZITAXEL
     Dosage: 40MG (22.5 MG/M2) Q3W IN CYCLES 37?51
     Route: 041
  5. JEVTANA [Suspect]
     Active Substance: CABAZITAXEL
     Dosage: 20 MG/M2, Q3W
     Route: 041
     Dates: start: 2015
  6. JEVTANA [Suspect]
     Active Substance: CABAZITAXEL
     Dosage: 35 MG (20 MG/M2) Q4W IN CYCLES 18?27
     Route: 041
  7. G LASTA [Concomitant]
     Active Substance: PEGFILGRASTIM
     Indication: COLONY STIMULATING FACTOR THERAPY
     Dosage: Q3W; ADMINISTERED TWO DAYS AFTER CABAZITAXEL (DAY 3)
     Route: 065
     Dates: start: 2015

REACTIONS (11)
  - Haematuria [Recovered/Resolved]
  - Cerebral infarction [Recovered/Resolved]
  - Muscular weakness [Unknown]
  - Cerebral infarction [Fatal]
  - Pneumonia [Fatal]
  - Pyrexia [Recovering/Resolving]
  - Faeces soft [Unknown]
  - Pneumonia bacterial [Unknown]
  - Febrile neutropenia [Recovering/Resolving]
  - Neutrophil count decreased [Recovering/Resolving]
  - Diarrhoea [Unknown]

NARRATIVE: CASE EVENT DATE: 2015
